FAERS Safety Report 6452709-6 (Version None)
Quarter: 2009Q4

REPORT INFORMATION
  Report Type: 
  Country: None (occurrence: None)
  Receive Date: 20091123
  Receipt Date: 20091123
  Transmission Date: 20100525
  Serious: Yes (Other)
  Sender: FDA-Public Use
  Company Number: None

PATIENT
  Sex: Male

DRUGS (1)
  1. RISPERIDONE [Suspect]
     Dosage: 2MG ONE AT BEDTIME
     Dates: start: 20080930, end: 20081020

REACTIONS (3)
  - MOOD SWINGS [None]
  - PARANOIA [None]
  - PRODUCT SUBSTITUTION ISSUE [None]
